FAERS Safety Report 6536940-7 (Version None)
Quarter: 2010Q1

REPORT INFORMATION
  Report Type: 
  Country: None (occurrence: None)
  Receive Date: 20100113
  Receipt Date: 20100106
  Transmission Date: 20100710
  Serious: Yes (Other)
  Sender: FDA-Public Use
  Company Number: US-AMGEN-US364387

PATIENT
  Sex: Male
  Weight: 94 kg

DRUGS (3)
  1. NPLATE [Suspect]
     Indication: IDIOPATHIC THROMBOCYTOPENIC PURPURA
     Dates: start: 20090827
  2. PREDNISONE [Concomitant]
     Route: 065
     Dates: start: 20091221, end: 20091228
  3. PREDNISONE [Concomitant]
     Dates: start: 20091228

REACTIONS (2)
  - PLATELET COUNT DECREASED [None]
  - PLATELET COUNT INCREASED [None]
